FAERS Safety Report 8954612 (Version 1)
Quarter: 2012Q4

REPORT INFORMATION
  Report Type: 
  Country: DE (occurrence: DE)
  Receive Date: 20121207
  Receipt Date: 20121207
  Transmission Date: 20130627
  Serious: Yes (Other)
  Sender: FDA-Public Use
  Company Number: DE-MYLANLABS-2012S1024504

PATIENT
  Age: 53 Year
  Sex: Female
  Weight: 100 kg

DRUGS (1)
  1. VENLAFAXIN [Suspect]
     Indication: DEPRESSION
     Dosage: 1/2-0-1/2-0
     Route: 048
     Dates: start: 20120715, end: 20120715

REACTIONS (2)
  - Restlessness [Recovered/Resolved]
  - Hot flush [Recovered/Resolved]
